FAERS Safety Report 24047775 (Version 1)
Quarter: 2024Q3

REPORT INFORMATION
  Report Type: Spontaneous
  Country: CN (occurrence: CN)
  Receive Date: 20240703
  Receipt Date: 20240703
  Transmission Date: 20241016
  Serious: Yes (Hospitalization)
  Sender: MERCK
  Company Number: CN-009507513-2407CHN001072

PATIENT
  Age: 64 Year
  Sex: Male
  Weight: 65 kg

DRUGS (3)
  1. KEYTRUDA [Suspect]
     Active Substance: PEMBROLIZUMAB
     Indication: Lung neoplasm malignant
     Dosage: 200 MILLIGRAM, ONCE
     Route: 041
     Dates: start: 20240522, end: 20240522
  2. CARBOPLATIN [Suspect]
     Active Substance: CARBOPLATIN
     Indication: Lung neoplasm malignant
     Dosage: 400 MILLIGRAM, ONCE
     Route: 041
     Dates: start: 20240522, end: 20240522
  3. PACLITAXEL [Suspect]
     Active Substance: PACLITAXEL
     Indication: Lung neoplasm malignant
     Dosage: 200 MILLIGRAM, ONCE
     Route: 041
     Dates: start: 20240522, end: 20240522

REACTIONS (1)
  - Hepatic function abnormal [Recovering/Resolving]

NARRATIVE: CASE EVENT DATE: 20240617
